FAERS Safety Report 6610788-7 (Version None)
Quarter: 2010Q1

REPORT INFORMATION
  Report Type: 
  Country: None (occurrence: None)
  Receive Date: 20100302
  Receipt Date: 20100219
  Transmission Date: 20100710
  Serious: Yes (Hospitalization, Other)
  Sender: FDA-Public Use
  Company Number: B0636506A

PATIENT
  Age: 25 Year
  Sex: Female

DRUGS (1)
  1. ZINNAT [Suspect]
     Indication: DRUG USE FOR UNKNOWN INDICATION
     Dosage: 500MG TWICE PER DAY
     Route: 048

REACTIONS (3)
  - CONDITION AGGRAVATED [None]
  - NO THERAPEUTIC RESPONSE [None]
  - PRODUCT QUALITY ISSUE [None]
